FAERS Safety Report 8124405 (Version 2)
Quarter: 2013Q1

REPORT INFORMATION
  Report Type: Spontaneous
  Country: US (occurrence: US)
  Receive Date: 20110907
  Receipt Date: 20130220
  Transmission Date: 20140127
  Serious: Yes (Hospitalization)
  Sender: FDA-Public Use
  Company Number: US-GLAXOSMITHKLINE-A0817040A

PATIENT
  Age: 65 Year
  Sex: Female
  Weight: 105.5 kg

DRUGS (7)
  1. AVANDIA [Suspect]
     Indication: DIABETES MELLITUS
     Dosage: 4MG PER DAY
     Route: 048
     Dates: start: 20030521, end: 20080410
  2. AVANDAMET [Suspect]
     Indication: DIABETES MELLITUS
     Route: 048
     Dates: start: 20030521, end: 20080410
  3. ZOCOR [Concomitant]
  4. ALLOPURINOL [Concomitant]
  5. ALTACE [Concomitant]
  6. METOPROLOL [Concomitant]
  7. METFORMIN [Concomitant]

REACTIONS (6)
  - Myocardial infarction [Not Recovered/Not Resolved]
  - Transient ischaemic attack [Unknown]
  - Cardiac failure congestive [Unknown]
  - Pulmonary oedema [Unknown]
  - Coronary artery bypass [Unknown]
  - Arteriosclerosis [Unknown]
